FAERS Safety Report 8877580 (Version 1)
Quarter: 2012Q4

REPORT INFORMATION
  Report Type: Spontaneous
  Country: US (occurrence: None)
  Receive Date: 20121026
  Receipt Date: 20121026
  Transmission Date: 20130627
  Serious: Yes (Life-Threatening, Hospitalization, Other)
  Sender: FDA-Public Use
  Company Number: None

PATIENT
  Age: 77 Year
  Sex: Male
  Weight: 104.5 kg

DRUGS (3)
  1. DABIGATRAN [Suspect]
     Indication: ATRIAL FIBRILLATION
     Route: 048
     Dates: start: 20120401, end: 20121024
  2. NAPROXEN [Suspect]
     Indication: CHEST PAIN
     Route: 048
     Dates: start: 20120901, end: 20121024
  3. NAPROXEN [Suspect]
     Indication: BACK PAIN
     Route: 048
     Dates: start: 20120901, end: 20121024

REACTIONS (2)
  - Pericardial haemorrhage [None]
  - Cardiac tamponade [None]
